FAERS Safety Report 23053570 (Version 1)
Quarter: 2023Q4

REPORT INFORMATION
  Report Type: Spontaneous
  Country: US (occurrence: None)
  Receive Date: 20231011
  Receipt Date: 20231011
  Transmission Date: 20240110
  Serious: No
  Sender: FDA-Public Use
  Company Number: 2023A218409

PATIENT
  Sex: Female

DRUGS (4)
  1. LYNPARZA [Suspect]
     Active Substance: OLAPARIB
     Route: 048
  2. LYNPARZA [Suspect]
     Active Substance: OLAPARIB
     Route: 048
  3. PROTONIX [Concomitant]
     Active Substance: PANTOPRAZOLE SODIUM
  4. ZOFRAN [Concomitant]
     Active Substance: ONDANSETRON HYDROCHLORIDE

REACTIONS (16)
  - Dry mouth [Unknown]
  - Tongue dry [Unknown]
  - Feeling abnormal [Unknown]
  - Stress [Unknown]
  - Illness [Unknown]
  - Faecaloma [Unknown]
  - Weight decreased [Unknown]
  - Nausea [Unknown]
  - Paraesthesia [Unknown]
  - Dysphagia [Not Recovered/Not Resolved]
  - Pain [Unknown]
  - Constipation [Unknown]
  - Blood cholesterol abnormal [Unknown]
  - Fatigue [Unknown]
  - Taste disorder [Not Recovered/Not Resolved]
  - Product dose omission issue [Unknown]
